FAERS Safety Report 5792732-8 (Version None)
Quarter: 2008Q2

REPORT INFORMATION
  Report Type: 
  Country: None (occurrence: None)
  Receive Date: 20080625
  Receipt Date: 20080617
  Transmission Date: 20081010
  Serious: Yes (Hospitalization)
  Sender: FDA-Public Use
  Company Number: 080091

PATIENT
  Age: 68 Year
  Sex: Male
  Weight: 113.3993 kg

DRUGS (1)
  1. GOLYTELY [Suspect]
     Indication: COLONOSCOPY
     Dosage: 8 OZ (1 GLASS) /1X/PO
     Route: 048
     Dates: start: 20080328

REACTIONS (2)
  - ANAPHYLACTIC SHOCK [None]
  - FALL [None]
